FAERS Safety Report 5454594-8 (Version None)
Quarter: 2007Q3

REPORT INFORMATION
  Report Type: 
  Country: None (occurrence: None)
  Receive Date: 20070917
  Receipt Date: 20070906
  Transmission Date: 20080115
  Serious: Yes (Other)
  Sender: FDA-Public Use
  Company Number: US-SHR-US-2007-032343

PATIENT
  Age: 66 Year
  Sex: Male
  Weight: 79.819 kg

DRUGS (1)
  1. LEUKINE [Suspect]
     Indication: LUNG CANCER METASTATIC
     Dosage: 300 MCG DAILY D5-D12
     Route: 058
     Dates: start: 20070827, end: 20070827

REACTIONS (2)
  - BLOOD PRESSURE DECREASED [None]
  - CONVULSION [None]
